FAERS Safety Report 16941036 (Version 4)
Quarter: 2021Q1

REPORT INFORMATION
  Report Type: Spontaneous
  Country: US (occurrence: US)
  Receive Date: 20191021
  Receipt Date: 20210104
  Transmission Date: 20210419
  Serious: Yes (Other)
  Sender: FDA-Public Use
  Company Number: US-SA-2019SA286385

PATIENT

DRUGS (1)
  1. DUPIXENT [Suspect]
     Active Substance: DUPILUMAB
     Indication: ASTHMA
     Dosage: 300 MG, QOW
     Route: 058
     Dates: start: 20190508

REACTIONS (11)
  - Eye pain [Unknown]
  - Eye contusion [Recovering/Resolving]
  - COVID-19 [Unknown]
  - Transient ischaemic attack [Unknown]
  - Extra dose administered [Unknown]
  - Blister [Recovering/Resolving]
  - Eye inflammation [Recovering/Resolving]
  - Eye disorder [Recovering/Resolving]
  - Eye pruritus [Recovering/Resolving]
  - Eye haemorrhage [Unknown]
  - Vision blurred [Recovering/Resolving]

NARRATIVE: CASE EVENT DATE: 2019
